FAERS Safety Report 26080514 (Version 1)
Quarter: 2025Q4

REPORT INFORMATION
  Report Type: Spontaneous
  Country: CH (occurrence: CH)
  Receive Date: 20251124
  Receipt Date: 20251124
  Transmission Date: 20260118
  Serious: Yes (Death)
  Sender: ROCHE
  Company Number: None

PATIENT
  Age: 42 Year
  Sex: Male
  Weight: 75 kg

DRUGS (4)
  1. MYCOPHENOLATE MOFETIL [Suspect]
     Active Substance: MYCOPHENOLATE MOFETIL
     Indication: Immunosuppressant drug therapy
     Route: 065
  2. CYCLOSPORINE [Suspect]
     Active Substance: CYCLOSPORINE
     Indication: Immunosuppressant drug therapy
     Route: 065
  3. PREDNISONE [Suspect]
     Active Substance: PREDNISONE
     Indication: Immunosuppressant drug therapy
     Dosage: MAINTENANCE DOSE 0.1 MG/KG/DAY, BODY WEIGHT 75 KG
     Route: 065
  4. TACROLIMUS [Suspect]
     Active Substance: TACROLIMUS
     Indication: Immunosuppressant drug therapy
     Dosage: IN THE LAST 12 MONTHS THE MEDIAN TROUGH (C0) TAC LEVEL WAS 11.3 NG/ML (TARGET LEVEL 8-10 NG/ML)
     Route: 065

REACTIONS (4)
  - Metastases to lung [Fatal]
  - Cholangiocarcinoma [Fatal]
  - Neoplasm progression [Fatal]
  - Hepatic failure [Fatal]
